FAERS Safety Report 17087789 (Version 2)
Quarter: 2020Q2

REPORT INFORMATION
  Report Type: Spontaneous
  Country: US (occurrence: US)
  Receive Date: 20191128
  Receipt Date: 20200526
  Transmission Date: 20200713
  Serious: Yes (Other)
  Sender: FDA-Public Use
  Company Number: US-UCBSA-2018030242

PATIENT
  Sex: Female

DRUGS (1)
  1. CIMZIA [Suspect]
     Active Substance: CERTOLIZUMAB PEGOL
     Indication: RHEUMATOID ARTHRITIS
     Dosage: 200 MG, EV 2 WEEKS(QOW)
     Route: 058
     Dates: start: 201802, end: 2018

REACTIONS (6)
  - Migraine [Unknown]
  - Diarrhoea [Unknown]
  - Vomiting [Unknown]
  - Oropharyngeal pain [Unknown]
  - Nausea [Unknown]
  - Influenza like illness [Unknown]

NARRATIVE: CASE EVENT DATE: 2018
